FAERS Safety Report 5753853-9 (Version None)
Quarter: 2008Q2

REPORT INFORMATION
  Report Type: 
  Country: None (occurrence: None)
  Receive Date: 20080530
  Receipt Date: 20080519
  Transmission Date: 20081010
  Serious: Yes (Other)
  Sender: FDA-Public Use
  Company Number: GB-AMGEN-UK281054

PATIENT
  Sex: Female

DRUGS (3)
  1. ARANESP [Suspect]
     Indication: DRUG USE FOR UNKNOWN INDICATION
     Route: 065
     Dates: start: 20080314
  2. ASPIRIN [Concomitant]
     Route: 065
  3. IRON [Concomitant]
     Route: 065

REACTIONS (1)
  - HYPERTENSION [None]
